FAERS Safety Report 24223303 (Version 1)
Quarter: 2024Q3

REPORT INFORMATION
  Report Type: Spontaneous
  Country: US (occurrence: US)
  Receive Date: 20240819
  Receipt Date: 20240819
  Transmission Date: 20241017
  Serious: No
  Sender: ANI
  Company Number: US-ANIPHARMA-2024-US-005139

PATIENT
  Sex: Female

DRUGS (2)
  1. ANASTROZOLE [Suspect]
     Active Substance: ANASTROZOLE
     Indication: Product used for unknown indication
     Route: 065
  2. LYNPARZA [Suspect]
     Active Substance: OLAPARIB
     Dosage: 300 MG TWO TIMES A DAY
     Route: 048

REACTIONS (1)
  - COVID-19 [Unknown]
